FAERS Safety Report 16917691 (Version 1)
Quarter: 2019Q4

REPORT INFORMATION
  Report Type: Spontaneous
  Country: GB (occurrence: GB)
  Receive Date: 20191015
  Receipt Date: 20191015
  Transmission Date: 20200122
  Serious: Yes (Hospitalization, Disabling, Other)
  Sender: FDA-Public Use
  Company Number: GB-TEVA-2019-GB-1120654

PATIENT
  Age: 59 Year
  Sex: Female
  Weight: 99 kg

DRUGS (1)
  1. TEVA UK PRAVASTATIN [Suspect]
     Active Substance: PRAVASTATIN
     Indication: HYPERLIPIDAEMIA
     Dosage: 80
     Route: 048
     Dates: start: 20190815, end: 20190905

REACTIONS (2)
  - Rash [Not Recovered/Not Resolved]
  - Proteinuria [Recovered/Resolved with Sequelae]

NARRATIVE: CASE EVENT DATE: 20190827
